FAERS Safety Report 11591930 (Version 2)
Quarter: 2016Q4

REPORT INFORMATION
  Report Type: Spontaneous
  Country: GB (occurrence: GB)
  Receive Date: 20151005
  Receipt Date: 20161116
  Transmission Date: 20170206
  Serious: Yes (Death, Other)
  Sender: FDA-Public Use
  Company Number: GB-PFIZER INC-2015318599

PATIENT
  Age: 53 Year
  Sex: Male

DRUGS (17)
  1. NICORETTE [Concomitant]
     Active Substance: NICOTINE
     Dosage: 1 DF, 3X/DAY (3 DF PER DAY)
     Route: 048
  2. ATENOLOL. [Suspect]
     Active Substance: ATENOLOL
     Dosage: 30 MG, 1X/DAY
     Route: 048
  3. VINORELBINE [Suspect]
     Active Substance: VINORELBINE\VINORELBINE TARTRATE
     Indication: NON-SMALL CELL LUNG CANCER STAGE IIIB
     Dosage: UNK
     Route: 065
  4. VINORELBINE [Suspect]
     Active Substance: VINORELBINE\VINORELBINE TARTRATE
     Dosage: UNK
     Dates: start: 201506
  5. VALPROATE SODIUM. [Concomitant]
     Active Substance: VALPROATE SODIUM
     Indication: MOOD SWINGS
     Dosage: 1 G, 2X/DAY (2 G DAILY)
     Route: 048
  6. ZAPONEX [Suspect]
     Active Substance: CLOZAPINE
     Indication: SCHIZOPHRENIA
     Dosage: 150 MG IN THE MORNING AND 200 MG AT NIGHT
     Route: 065
     Dates: start: 20070510, end: 20150901
  7. PHOLCODINE [Concomitant]
     Active Substance: PHOLCODINE
     Dosage: 1 DF, AS NEEDED
  8. CISPLATIN. [Suspect]
     Active Substance: CISPLATIN
     Indication: NON-SMALL CELL LUNG CANCER STAGE IIIB
     Dosage: UNK
  9. SIMVASTATIN. [Concomitant]
     Active Substance: SIMVASTATIN
     Indication: BLOOD CHOLESTEROL INCREASED
     Dosage: 20 MG, 1X/DAY
     Route: 048
  10. ATENOLOL. [Suspect]
     Active Substance: ATENOLOL
     Indication: BLOOD PRESSURE INCREASED
     Dosage: 25 MG, 2X/DAY (50 MG PER DAY)
     Route: 048
  11. CISPLATIN. [Suspect]
     Active Substance: CISPLATIN
     Dosage: UNK
     Dates: start: 201506
  12. MST CONTINUS [Concomitant]
     Active Substance: MORPHINE SULFATE
     Dosage: 5 MG, 2X/DAY (10 MG PER DAY)
  13. SALBUTAMOL [Concomitant]
     Active Substance: ALBUTEROL
     Dosage: AS REQUIRED
     Route: 048
  14. TIOTROPIUM [Concomitant]
     Active Substance: TIOTROPIUM
     Indication: INHALATION THERAPY
     Dosage: 18 ?G, 1X/DAY
     Route: 048
  15. NUTRITIONAL SUPPLEMENT [Concomitant]
     Active Substance: DIETARY SUPPLEMENT
     Indication: NUTRITIONAL SUPPLEMENTATION
     Dosage: UNK
     Route: 048
  16. EPHEDRINE HYDROCHLORIDE [Concomitant]
     Active Substance: EPHEDRINE HYDROCHLORIDE
     Dosage: 1 DF, AS NEEDED
  17. ORAMORPH [Concomitant]
     Active Substance: MORPHINE SULFATE
     Dosage: AS REQUIRED

REACTIONS (9)
  - Infection [Fatal]
  - Disease progression [Fatal]
  - White blood cell count decreased [Recovered/Resolved]
  - White blood cell count increased [Not Recovered/Not Resolved]
  - Neutropenic sepsis [Fatal]
  - Non-small cell lung cancer stage IIIB [Fatal]
  - Neutropenia [Recovered/Resolved]
  - Neutrophil count increased [Not Recovered/Not Resolved]
  - Product use issue [Not Recovered/Not Resolved]

NARRATIVE: CASE EVENT DATE: 20140311
